FAERS Safety Report 10915141 (Version 1)
Quarter: 2015Q1

REPORT INFORMATION
  Report Type: Spontaneous
  Country: US (occurrence: US)
  Receive Date: 20150316
  Receipt Date: 20150316
  Transmission Date: 20150721
  Serious: No
  Sender: FDA-Public Use
  Company Number: US-009507513-1502USA007362

PATIENT
  Age: 16 Year
  Sex: Female
  Weight: 68.27 kg

DRUGS (1)
  1. NEXPLANON [Suspect]
     Active Substance: ETONOGESTREL
     Indication: CONTRACEPTION
     Dosage: 1ROD, 3 YEARS
     Route: 059
     Dates: start: 20131119

REACTIONS (6)
  - Alopecia [Unknown]
  - Headache [Unknown]
  - Anger [Unknown]
  - Menorrhagia [Unknown]
  - Depression [Unknown]
  - Polymenorrhoea [Unknown]

NARRATIVE: CASE EVENT DATE: 201404
